FAERS Safety Report 9376686 (Version 1)
Quarter: 2013Q3

REPORT INFORMATION
  Report Type: Spontaneous
  Country: GB (occurrence: GB)
  Receive Date: 20130701
  Receipt Date: 20130701
  Transmission Date: 20140515
  Serious: Yes (Hospitalization)
  Sender: FDA-Public Use
  Company Number: GB-ACCORD-018189

PATIENT
  Age: 61 Year
  Sex: Female

DRUGS (9)
  1. ALLOPURINOL [Suspect]
     Indication: GOUT
     Dosage: TAKEN IN THE MORNING.
     Route: 048
     Dates: start: 20130522, end: 20130529
  2. LEVEMIR [Concomitant]
  3. LIRAGLUTID [Concomitant]
  4. NOVORAPID [Concomitant]
  5. METFORMIN HYDROCHLORIDE [Concomitant]
  6. FUROSEMIDE [Concomitant]
  7. PERINDOPRIL [Concomitant]
  8. ATORVASTATIN [Concomitant]
  9. ASPIRIN [Concomitant]

REACTIONS (1)
  - Drug reaction with eosinophilia and systemic symptoms [Not Recovered/Not Resolved]
